FAERS Safety Report 14094078 (Version 1)
Quarter: 2017Q4

REPORT INFORMATION
  Report Type: Spontaneous
  Country: IT (occurrence: IT)
  Receive Date: 20171016
  Receipt Date: 20171016
  Transmission Date: 20180321
  Serious: Yes (Other)
  Sender: FDA-Public Use
  Company Number: IT-TEVA-814357ISR

PATIENT
  Age: 43 Year
  Sex: Female

DRUGS (1)
  1. ISOTRETINOINA DIFA COOPER 20 MG [Suspect]
     Active Substance: ISOTRETINOIN
     Indication: ERYTHEMA
     Dosage: 20 MILLIGRAM DAILY;
     Route: 048
     Dates: start: 201701

REACTIONS (12)
  - Faeces hard [Not Recovered/Not Resolved]
  - Cystitis [Not Recovered/Not Resolved]
  - Functional gastrointestinal disorder [Not Recovered/Not Resolved]
  - Mood altered [Not Recovered/Not Resolved]
  - Alopecia [Not Recovered/Not Resolved]
  - Abdominal distension [Not Recovered/Not Resolved]
  - Liver disorder [Not Recovered/Not Resolved]
  - Flatulence [Not Recovered/Not Resolved]
  - Lipids increased [Not Recovered/Not Resolved]
  - Drug ineffective [Unknown]
  - Fluid retention [Not Recovered/Not Resolved]
  - Weight increased [Not Recovered/Not Resolved]
